FAERS Safety Report 4982486-7 (Version None)
Quarter: 2006Q2

REPORT INFORMATION
  Report Type: 
  Country: None (occurrence: None)
  Receive Date: 20060421
  Receipt Date: 20060413
  Transmission Date: 20061013
  Serious: Yes (Other)
  Sender: FDA-Public Use
  Company Number: 2006050355

PATIENT
  Age: 27 Year
  Sex: Female
  Weight: 90.7194 kg

DRUGS (1)
  1. UNISOM [Suspect]
     Dosage: 32 SLEEPGELS ONCE, ORAL
     Route: 048
     Dates: start: 20060413, end: 20060413

REACTIONS (2)
  - OVERDOSE [None]
  - VOMITING [None]
